FAERS Safety Report 9736667 (Version 2)
Quarter: 2015Q3

REPORT INFORMATION
  Report Type: Spontaneous
  Country: US (occurrence: US)
  Receive Date: 20131206
  Receipt Date: 20150804
  Transmission Date: 20151125
  Serious: No
  Sender: FDA-Public Use
  Company Number: US-GILEAD-2009-0023229

PATIENT
  Age: 64 Year
  Sex: Female
  Weight: 98.88 kg

DRUGS (10)
  1. ZETIA [Concomitant]
     Active Substance: EZETIMIBE
  2. CYPROHEPTADINE. [Concomitant]
     Active Substance: CYPROHEPTADINE
  3. LASIX [Concomitant]
     Active Substance: FUROSEMIDE
  4. OXYCONTIN [Concomitant]
     Active Substance: OXYCODONE HYDROCHLORIDE
  5. PROZAC [Concomitant]
     Active Substance: FLUOXETINE HYDROCHLORIDE
  6. LETAIRIS [Suspect]
     Active Substance: AMBRISENTAN
     Indication: PULMONARY ARTERIAL HYPERTENSION
     Route: 048
     Dates: start: 20071108
  7. TENORMIN [Concomitant]
     Active Substance: ATENOLOL
  8. MAXALT [Concomitant]
     Active Substance: RIZATRIPTAN BENZOATE
  9. KLONOPIN [Concomitant]
     Active Substance: CLONAZEPAM
  10. COUMADIN [Concomitant]
     Active Substance: WARFARIN SODIUM

REACTIONS (1)
  - Haemoglobin decreased [Unknown]
